FAERS Safety Report 26116382 (Version 1)
Quarter: 2025Q4

REPORT INFORMATION
  Report Type: Spontaneous
  Country: AU (occurrence: AU)
  Receive Date: 20251203
  Receipt Date: 20251203
  Transmission Date: 20260117
  Serious: Yes (Death, Other)
  Sender: SANOFI AVENTIS
  Company Number: AU-SA-2025SA357463

PATIENT
  Age: 75 Year
  Sex: Male
  Weight: 116 kg

DRUGS (41)
  1. AMIODARONE HYDROCHLORIDE [Suspect]
     Active Substance: AMIODARONE HYDROCHLORIDE
     Dosage: UNK
     Dates: start: 20230806, end: 20230817
  2. METOPROLOL TARTRATE [Suspect]
     Active Substance: METOPROLOL TARTRATE
     Dosage: UNK
     Dates: start: 20230813, end: 20230817
  3. PIPERACILLIN SODIUM\TAZOBACTAM SODIUM [Suspect]
     Active Substance: PIPERACILLIN SODIUM\TAZOBACTAM SODIUM
     Dosage: UNK
  4. AZITHROMYCIN [Suspect]
     Active Substance: AZITHROMYCIN
     Dosage: UNK
     Dates: start: 20230806, end: 20230810
  5. CEFTRIAXONE [Suspect]
     Active Substance: CEFTRIAXONE
     Dosage: UNK
     Dates: start: 20230806, end: 20230806
  6. DEXAMETHASONE [Suspect]
     Active Substance: DEXAMETHASONE
     Dosage: UNK
     Dates: start: 20230807, end: 20230816
  7. DIGOXIN [Suspect]
     Active Substance: DIGOXIN
     Dosage: UNK
     Dates: start: 20230812, end: 20230817
  8. ENOXAPARIN SODIUM [Suspect]
     Active Substance: ENOXAPARIN SODIUM
     Dosage: UNK
     Dates: start: 20230806, end: 20230817
  9. FUROSEMIDE [Suspect]
     Active Substance: FUROSEMIDE
     Dosage: UNK
     Dates: start: 20230806, end: 20230809
  10. HYDROCORTISONE [Suspect]
     Active Substance: HYDROCORTISONE
     Dosage: UNK
     Dates: start: 20230806, end: 20230806
  11. MIDAZOLAM [Suspect]
     Active Substance: MIDAZOLAM
     Dosage: UNK
     Dates: start: 20230806, end: 20230817
  12. ACETAMINOPHEN [Suspect]
     Active Substance: ACETAMINOPHEN
     Dosage: UNK
     Dates: start: 20230807, end: 20230817
  13. POTASSIUM CHLORIDE [Suspect]
     Active Substance: POTASSIUM CHLORIDE
     Dosage: UNK
     Dates: start: 20230807, end: 20230809
  14. SULFAMETHOXAZOLE\TRIMETHOPRIM [Suspect]
     Active Substance: SULFAMETHOXAZOLE\TRIMETHOPRIM
     Dosage: UNK
     Dates: start: 20230807, end: 20230807
  15. THIAMINE HYDROCHLORIDE [Suspect]
     Active Substance: THIAMINE HYDROCHLORIDE
     Dosage: UNK
     Dates: start: 20230817, end: 20230817
  16. ACTRAPID [Suspect]
     Active Substance: INSULIN HUMAN
     Dosage: UNK
     Dates: start: 20230806, end: 20230817
  17. DEXTROSE [Suspect]
     Active Substance: DEXTROSE MONOHYDRATE
     Dosage: UNK
     Dates: start: 20230816, end: 20230826
  18. MOVICOL [Suspect]
     Active Substance: POLYETHYLENE GLYCOL 3350\POTASSIUM CHLORIDE\SODIUM BICARBONATE\SODIUM CHLORIDE
     Dosage: UNK
     Dates: start: 20230808, end: 20230809
  19. ACYCLOVIR [Suspect]
     Active Substance: ACYCLOVIR
     Dosage: UNK
     Dates: start: 20230816, end: 20230817
  20. ATOVAQUONE [Suspect]
     Active Substance: ATOVAQUONE
     Dosage: UNK
     Dates: start: 20230807, end: 20230809
  21. CALCIUM CHLORIDE [Suspect]
     Active Substance: CALCIUM CHLORIDE
     Dosage: UNK
     Dates: start: 20230811, end: 20230811
  22. CALCIUM GLUCONATE MONOHYDRATE [Suspect]
     Active Substance: CALCIUM GLUCONATE MONOHYDRATE
     Dosage: UNK
     Dates: start: 20230811, end: 20230813
  23. ESOMEPRAZOLE [Suspect]
     Active Substance: ESOMEPRAZOLE
     Dosage: UNK
     Dates: start: 20230806, end: 20230816
  24. FENTANYL [Suspect]
     Active Substance: FENTANYL
     Dosage: UNK
     Dates: start: 20230806, end: 20230817
  25. IPRATROPIUM BROMIDE [Suspect]
     Active Substance: IPRATROPIUM BROMIDE
     Dosage: UNK
     Dates: start: 20230809, end: 20230809
  26. KETAMINE HYDROCHLORIDE [Suspect]
     Active Substance: KETAMINE HYDROCHLORIDE
     Dosage: UNK
     Dates: start: 20230806, end: 20230809
  27. MAGNESIUM SULFATE HEPTAHYDRATE [Suspect]
     Active Substance: MAGNESIUM SULFATE HEPTAHYDRATE
     Dosage: UNK
     Dates: start: 20230809, end: 20230809
  28. METARAMINOL BITARTRATE [Suspect]
     Active Substance: METARAMINOL BITARTRATE
     Dosage: UNK
     Dates: start: 20230806, end: 20230815
  29. METOCLOPRAMIDE [Suspect]
     Active Substance: METOCLOPRAMIDE
     Dosage: UNK
     Dates: start: 20230810, end: 20230813
  30. POTASSIUM PHOSPHATE, MONOBASIC [Suspect]
     Active Substance: POTASSIUM PHOSPHATE, MONOBASIC
     Dosage: UNK
     Dates: start: 20230809, end: 20230809
  31. MORPHINE [Suspect]
     Active Substance: MORPHINE
     Dosage: UNK
     Dates: start: 20230817, end: 20230817
  32. NITRIC OXIDE [Suspect]
     Active Substance: NITRIC OXIDE
     Dosage: UNK
     Dates: start: 20230806, end: 20230810
  33. NOREPINEPHRINE BITARTRATE [Suspect]
     Active Substance: NOREPINEPHRINE BITARTRATE
     Dosage: UNK
     Dates: start: 20230807, end: 20230816
  34. PROPOFOL [Suspect]
     Active Substance: PROPOFOL
     Dosage: UNK
     Dates: start: 20230806, end: 20230815
  35. REMDESIVIR [Suspect]
     Active Substance: REMDESIVIR
     Dosage: UNK
     Dates: start: 20230807, end: 20230811
  36. ROCURONIUM BROMIDE [Suspect]
     Active Substance: ROCURONIUM BROMIDE
     Dosage: UNK
     Dates: start: 20230806, end: 20230809
  37. ALBUTEROL SULFATE [Suspect]
     Active Substance: ALBUTEROL SULFATE
     Dosage: UNK
     Dates: start: 20230812, end: 20230817
  38. SENNOSIDES [Suspect]
     Active Substance: SENNOSIDES
     Dosage: UNK
     Dates: start: 20230808, end: 20230809
  39. SODIUM CHLORIDE [Suspect]
     Active Substance: SODIUM CHLORIDE
     Dosage: UNK
     Dates: start: 20230809, end: 20230815
  40. VANCOMYCIN [Suspect]
     Active Substance: VANCOMYCIN
     Dosage: UNK
     Dates: start: 20230813, end: 20230813
  41. RITUXIMAB [Concomitant]
     Active Substance: RITUXIMAB
     Dosage: UNK

REACTIONS (2)
  - Respiratory failure [Fatal]
  - Condition aggravated [Fatal]

NARRATIVE: CASE EVENT DATE: 20230806
